FAERS Safety Report 5302029-8 (Version None)
Quarter: 2007Q2

REPORT INFORMATION
  Report Type: 
  Country: None (occurrence: None)
  Receive Date: 20070412
  Receipt Date: 20070330
  Transmission Date: 20071010
  Serious: Yes (Life-Threatening, Hospitalization)
  Sender: FDA-Public Use
  Company Number: APP200700051

PATIENT
  Age: 65 Year
  Sex: Female

DRUGS (5)
  1. FLUOROURACIL [Suspect]
     Indication: METASTATIC GASTRIC CANCER
     Dosage: 1500 MG/M2, INTRAVENOUS
     Route: 042
     Dates: start: 20070129, end: 20070220
  2. CETUXIMAB (CETUXIMAB) [Suspect]
     Indication: METASTATIC GASTRIC CANCER
     Dosage: 250 MG/M2, INTRAVENOUS
     Route: 042
     Dates: start: 20070129, end: 20070220
  3. CAMPTOSAR [Suspect]
     Indication: METASTATIC GASTRIC CANCER
     Dosage: 80 MG/M2, INTRAVENOUS
     Route: 042
     Dates: start: 20070129, end: 20070220
  4. FOLINIC ACID (FOLINIC ACID) [Suspect]
     Indication: DRUG USE FOR UNKNOWN INDICATION
     Dosage: 200 MG/M2
     Dates: start: 20070129, end: 20070220
  5. ZOMETA [Concomitant]

REACTIONS (1)
  - HYPOCALCAEMIA [None]
